FAERS Safety Report 5228477-2 (Version None)
Quarter: 2007Q1

REPORT INFORMATION
  Report Type: 
  Country: None (occurrence: None)
  Receive Date: 20070205
  Receipt Date: 20070131
  Transmission Date: 20070707
  Serious: Yes (Death, Hospitalization)
  Sender: FDA-Public Use
  Company Number: US-BRISTOL-MYERS SQUIBB COMPANY-13663968

PATIENT
  Age: 46 Year
  Sex: Male
  Weight: 69 kg

DRUGS (4)
  1. CETUXIMAB [Suspect]
     Indication: NON-SMALL CELL LUNG CANCER
     Route: 042
     Dates: start: 20070125, end: 20070125
  2. CARBOPLATIN [Suspect]
     Indication: NON-SMALL CELL LUNG CANCER
     Route: 042
     Dates: start: 20070125, end: 20070125
  3. PACLITAXEL [Suspect]
     Indication: NON-SMALL CELL LUNG CANCER
     Route: 042
     Dates: start: 20070125, end: 20070125
  4. BEVACIZUMAB [Suspect]
     Indication: NON-SMALL CELL LUNG CANCER
     Route: 042
     Dates: start: 20070125, end: 20070125

REACTIONS (6)
  - ANOREXIA [None]
  - CARDIAC ARREST [None]
  - DEPRESSION [None]
  - FATIGUE [None]
  - HYPERNATRAEMIA [None]
  - HYPOTENSION [None]
